FAERS Safety Report 6235488-7 (Version None)
Quarter: 2009Q2

REPORT INFORMATION
  Report Type: 
  Country: None (occurrence: None)
  Receive Date: 20090618
  Receipt Date: 20080520
  Transmission Date: 20091009
  Serious: No
  Sender: FDA-Public Use
  Company Number: US-ASTRAZENECA-2008UW10342

PATIENT
  Age: 69 Year
  Sex: Female
  Weight: 59 kg

DRUGS (3)
  1. RHINOCORT [Suspect]
     Indication: SINUS DISORDER
     Route: 045
     Dates: start: 20080501
  2. RHINOCORT [Suspect]
     Indication: EYE IRRITATION
     Route: 045
     Dates: start: 20080501
  3. ZANTAC [Concomitant]

REACTIONS (3)
  - EAR DISCOMFORT [None]
  - NASAL DISCOMFORT [None]
  - OROPHARYNGEAL PAIN [None]
